FAERS Safety Report 22349468 (Version 1)
Quarter: 2023Q2

REPORT INFORMATION
  Report Type: Spontaneous
  Country: US (occurrence: US)
  Receive Date: 20230522
  Receipt Date: 20230522
  Transmission Date: 20230721
  Serious: No
  Sender: FDA-Public Use
  Company Number: US-ABBVIE-4756274

PATIENT
  Age: 57 Year
  Sex: Male

DRUGS (6)
  1. LEVOTHYROXINE [Suspect]
     Active Substance: LEVOTHYROXINE
     Indication: Product used for unknown indication
     Route: 048
  2. RADICAVA [Suspect]
     Active Substance: EDARAVONE
     Indication: Product used for unknown indication
     Route: 065
  3. EXSERVAN [Suspect]
     Active Substance: RILUZOLE
     Indication: Product used for unknown indication
     Route: 065
     Dates: start: 202212
  4. BACLOFEN [Concomitant]
     Active Substance: BACLOFEN
     Indication: Product used for unknown indication
  5. DAPSONE [Suspect]
     Active Substance: DAPSONE
     Indication: Product used for unknown indication
     Dosage: BP
     Route: 065
  6. LANSOPRAZOLE [Concomitant]
     Active Substance: LANSOPRAZOLE
     Indication: Product used for unknown indication

REACTIONS (4)
  - Hypoaesthesia oral [Not Recovered/Not Resolved]
  - Ageusia [Unknown]
  - Sunburn [Recovered/Resolved]
  - Sunburn [Recovering/Resolving]

NARRATIVE: CASE EVENT DATE: 20230401
